FAERS Safety Report 6146358-7 (Version None)
Quarter: 2009Q2

REPORT INFORMATION
  Report Type: 
  Country: None (occurrence: None)
  Receive Date: 20090407
  Receipt Date: 20090326
  Transmission Date: 20091009
  Serious: Yes (Other)
  Sender: FDA-Public Use
  Company Number: US-PFIZER INC-2009192744

PATIENT
  Sex: Female

DRUGS (2)
  1. REVATIO [Suspect]
     Indication: PULMONARY HYPERTENSION
     Dosage: FREQUENCY: 2X/DAY, EVERY OTHER DAY;
     Dates: start: 20081001
  2. OXYGEN [Concomitant]

REACTIONS (3)
  - DYSPNOEA [None]
  - FATIGUE [None]
  - URINARY TRACT INFECTION [None]
